FAERS Safety Report 13131446 (Version 1)
Quarter: 2017Q1

REPORT INFORMATION
  Report Type: Spontaneous
  Country: US (occurrence: US)
  Receive Date: 20170119
  Receipt Date: 20170119
  Transmission Date: 20170428
  Serious: No
  Sender: FDA-Public Use
  Company Number: US-PFIZER INC-2017022452

PATIENT
  Sex: Male

DRUGS (3)
  1. CELEBREX [Suspect]
     Active Substance: CELECOXIB
     Indication: KNEE ARTHROPLASTY
     Dosage: 200 MG, 1X/DAY
  2. CELEBREX [Suspect]
     Active Substance: CELECOXIB
     Indication: MUSCULOSKELETAL STIFFNESS
  3. CELEBREX [Suspect]
     Active Substance: CELECOXIB
     Indication: SCAR

REACTIONS (2)
  - Drug ineffective [Unknown]
  - Product use issue [Unknown]
